FAERS Safety Report 8334697-0 (Version None)
Quarter: 2012Q2

REPORT INFORMATION
  Report Type: 
  Country: None (occurrence: None)
  Receive Date: 20120503
  Receipt Date: 20120424
  Transmission Date: 20120825
  Serious: Yes (Hospitalization)
  Sender: FDA-Public Use
  Company Number: JP-JNJFOC-20120409307

PATIENT
  Sex: Female
  Weight: 46 kg

DRUGS (7)
  1. SIMPONI [Suspect]
     Indication: RHEUMATOID ARTHRITIS
     Route: 058
     Dates: start: 20120201, end: 20120222
  2. DOMPERIDONE [Concomitant]
     Route: 048
     Dates: start: 20111226, end: 20120112
  3. TRAMADOL HYDROCHLORIDE/ACETAMINOPHEN [Concomitant]
     Dates: start: 20120113, end: 20120123
  4. TRAMADOL HYDROCHLORIDE/ACETAMINOPHEN [Concomitant]
     Dates: start: 20111226, end: 20120112
  5. DOMPERIDONE [Concomitant]
     Route: 048
     Dates: start: 20120113, end: 20120203
  6. TRAMADOL HYDROCHLORIDE/ACETAMINOPHEN [Concomitant]
     Dates: start: 20120124, end: 20120203
  7. METHOTREXATE [Concomitant]
     Route: 048

REACTIONS (1)
  - GASTRIC CANCER [None]
